FAERS Safety Report 24047029 (Version 1)
Quarter: 2024Q3

REPORT INFORMATION
  Report Type: Spontaneous
  Country: US (occurrence: US)
  Receive Date: 20240703
  Receipt Date: 20240703
  Transmission Date: 20241017
  Serious: No
  Sender: CSL BEHRING
  Company Number: US-BEH-2024174901

PATIENT
  Sex: Male

DRUGS (4)
  1. HIZENTRA [Suspect]
     Active Substance: HUMAN IMMUNOGLOBULIN G
     Indication: Hypogammaglobulinaemia
     Dosage: 5 G, Q3W
     Route: 058
     Dates: start: 20231221
  2. CLINDAMYCIN [Concomitant]
     Active Substance: CLINDAMYCIN
  3. IRON [Concomitant]
     Active Substance: IRON
  4. VITAMIN D3 [Concomitant]
     Active Substance: CHOLECALCIFEROL

REACTIONS (1)
  - Blood immunoglobulin G decreased [Unknown]
